FAERS Safety Report 21076622 (Version 3)
Quarter: 2023Q1

REPORT INFORMATION
  Report Type: Spontaneous
  Country: US (occurrence: US)
  Receive Date: 20220713
  Receipt Date: 20230314
  Transmission Date: 20230417
  Serious: Yes (Other)
  Sender: FDA-Public Use
  Company Number: US-HORIZON THERAPEUTICS-HZN-2022-005052

PATIENT

DRUGS (2)
  1. TEPEZZA [Suspect]
     Active Substance: TEPROTUMUMAB-TRBW
     Indication: Endocrine ophthalmopathy
     Dosage: FIRST INFUSION
     Route: 042
  2. TEPEZZA [Suspect]
     Active Substance: TEPROTUMUMAB-TRBW
     Dosage: FINISHED RECEIVING ALL 8 INFUSIONS
     Route: 042
     Dates: start: 202112

REACTIONS (5)
  - Blood pressure increased [Unknown]
  - Hypoacusis [Recovered/Resolved]
  - Alopecia [Unknown]
  - Muscle spasms [Recovered/Resolved]
  - Autoimmune thyroiditis [Unknown]
